FAERS Safety Report 13347684 (Version 4)
Quarter: 2017Q3

REPORT INFORMATION
  Report Type: Report from Study
  Country: US (occurrence: US)
  Receive Date: 20170317
  Receipt Date: 20170712
  Transmission Date: 20171127
  Serious: Yes (Death, Hospitalization)
  Sender: FDA-Public Use
  Company Number: US-ACTELION-A-NJ2017-151164

PATIENT
  Age: 83 Year
  Sex: Female
  Weight: 49.89 kg

DRUGS (2)
  1. TRACLEER [Suspect]
     Active Substance: BOSENTAN
     Indication: PULMONARY ARTERIAL HYPERTENSION
     Dosage: 125 MG, BID
     Route: 048
  2. COUMADIN [Concomitant]
     Active Substance: WARFARIN SODIUM

REACTIONS (7)
  - Cystitis [Unknown]
  - Mental status changes [Recovering/Resolving]
  - Blood pressure increased [Recovering/Resolving]
  - Encephalopathy [Recovering/Resolving]
  - Atrial fibrillation [Recovering/Resolving]
  - Musculoskeletal pain [Unknown]
  - Death [Fatal]

NARRATIVE: CASE EVENT DATE: 20170606
